FAERS Safety Report 9348318 (Version 1)
Quarter: 2013Q2

REPORT INFORMATION
  Report Type: Spontaneous
  Country: US (occurrence: None)
  Receive Date: 20130613
  Receipt Date: 20130613
  Transmission Date: 20140414
  Serious: Yes (Death)
  Sender: FDA-Public Use
  Company Number: None

PATIENT
  Sex: Male

DRUGS (2)
  1. REYATAZ [Suspect]
     Indication: HIV INFECTION
     Dosage: 1 CAPSULE DAILY ORAL
     Route: 048
     Dates: start: 20130128, end: 20130506
  2. TRUVADA [Suspect]
     Dosage: 1 TABLET DAILY ORAL
     Route: 048
     Dates: start: 20130128, end: 20130506

REACTIONS (1)
  - Death [None]
